FAERS Safety Report 9669776 (Version 4)
Quarter: 2015Q1

REPORT INFORMATION
  Report Type: Spontaneous
  Country: US (occurrence: US)
  Receive Date: 20131105
  Receipt Date: 20150213
  Transmission Date: 20150721
  Serious: Yes (Other)
  Sender: FDA-Public Use
  Company Number: US-UCBSA-094784

PATIENT
  Sex: Female
  Weight: 58.96 kg

DRUGS (17)
  1. XYREM [Suspect]
     Active Substance: SODIUM OXYBATE
     Indication: NARCOLEPSY
     Dosage: NIGHTLY (DOSE STRENGTH:500 MG/ML)
     Route: 048
     Dates: start: 201208, end: 2012
  2. XYREM [Suspect]
     Active Substance: SODIUM OXYBATE
     Indication: CATAPLEXY
     Dosage: NIGHTLY (DOSE STRENGTH:500 MG/ML)
     Route: 048
     Dates: start: 2012, end: 20121107
  3. NAPROXEN SODIUM. [Concomitant]
     Active Substance: NAPROXEN SODIUM
     Dosage: UNKNOWN
  4. ALBUTEROL. [Concomitant]
     Active Substance: ALBUTEROL
     Dosage: UNKNOWN
  5. KEPPRA [Suspect]
     Active Substance: LEVETIRACETAM
  6. LAMOTRIGINE. [Concomitant]
     Active Substance: LAMOTRIGINE
     Dosage: UNKNOWN
  7. VALACICLOVIR HYDROCHLORIDE [Concomitant]
     Active Substance: VALACYCLOVIR HYDROCHLORIDE
     Dosage: UNKNOWN
  8. TRIAMCINOLONE [Concomitant]
     Active Substance: TRIAMCINOLONE
     Dosage: UNKNOWN
  9. XYREM [Suspect]
     Active Substance: SODIUM OXYBATE
     Dosage: NIGHTLY (DOSE STRENGTH:500 MG/ML)
     Route: 048
     Dates: start: 2013, end: 2013
  10. IBUPROFEN. [Concomitant]
     Active Substance: IBUPROFEN
     Dosage: UNKNOWN
  11. CITALOPRAM [Concomitant]
     Active Substance: CITALOPRAM HYDROBROMIDE
     Dosage: UNKNOWN
  12. FAMOTIDINE. [Concomitant]
     Active Substance: FAMOTIDINE
     Dosage: UNKNOWN
  13. LORATADINE. [Concomitant]
     Active Substance: LORATADINE
     Dosage: UNKNOWN
  14. XYREM [Suspect]
     Active Substance: SODIUM OXYBATE
     Dosage: NIGHTLY (DOSE STRENGTH:500 MG/ML)
     Route: 048
     Dates: start: 2012, end: 2013
  15. XYREM [Suspect]
     Active Substance: SODIUM OXYBATE
     Dosage: NIGHTLY (DOSE STRENGTH:500 MG/ML)
     Route: 048
     Dates: start: 201310
  16. HYDROCORTISONE. [Concomitant]
     Active Substance: HYDROCORTISONE
     Dosage: UNKNOWN
  17. ZOVIRAX [Concomitant]
     Active Substance: ACYCLOVIR
     Dosage: UNKNOWN

REACTIONS (3)
  - Seizure [Recovered/Resolved]
  - Somnolence [Recovered/Resolved]
  - Performance status decreased [Recovered/Resolved]
